FAERS Safety Report 5004998-2 (Version None)
Quarter: 2006Q1

REPORT INFORMATION
  Report Type: 
  Country: None (occurrence: None)
  Receive Date: 20060327
  Receipt Date: 20060214
  Transmission Date: 20060701
  Serious: No
  Sender: FDA-Public Use
  Company Number: SP00778

PATIENT
  Age: 43 Year
  Sex: Female
  Weight: 51.7101 kg

DRUGS (5)
  1. XIFAXAN [Suspect]
     Indication: GASTROINTESTINAL DISORDER
     Dosage: 200MG/TID, ORAL
     Route: 048
     Dates: start: 20060131
  2. XIFAXAN [Suspect]
     Indication: OVERGROWTH BACTERIAL
     Dosage: 200MG/TID, ORAL
     Route: 048
     Dates: start: 20060131
  3. LUNESTA [Concomitant]
  4. CLONOPIN [Concomitant]
  5. NEXIUM [Concomitant]

REACTIONS (1)
  - NAUSEA [None]
